FAERS Safety Report 12543278 (Version 1)
Quarter: 2016Q3

REPORT INFORMATION
  Report Type: Spontaneous
  Country: US (occurrence: US)
  Receive Date: 20160711
  Receipt Date: 20160711
  Transmission Date: 20161109
  Serious: No
  Sender: FDA-Public Use
  Company Number: US-STRIDES ARCOLAB LIMITED-2016SP008480

PATIENT

DRUGS (3)
  1. IMIQUIMOD. [Suspect]
     Active Substance: IMIQUIMOD
     Indication: SQUAMOUS CELL CARCINOMA OF THE ORAL CAVITY
     Dosage: UNK, DAILY
     Route: 061
  2. ACITRETIN. [Concomitant]
     Active Substance: ACITRETIN
     Indication: METASTASES TO LUNG
     Dosage: UNK
  3. IMIQUIMOD. [Suspect]
     Active Substance: IMIQUIMOD
     Indication: METASTASIS
     Dosage: UNK, ONCE A WEEK
     Route: 061

REACTIONS (2)
  - Tenderness [Unknown]
  - Off label use [Unknown]
